FAERS Safety Report 5971839-6 (Version None)
Quarter: 2008Q4

REPORT INFORMATION
  Report Type: 
  Country: None (occurrence: None)
  Receive Date: 20081201
  Receipt Date: 20080106
  Transmission Date: 20090506
  Serious: No
  Sender: FDA-Public Use
  Company Number: US-AMGEN-KDL259441

PATIENT
  Sex: Male

DRUGS (1)
  1. ENBREL [Suspect]
     Indication: RHEUMATOID ARTHRITIS
     Route: 058
     Dates: start: 20071104

REACTIONS (6)
  - ARTHRALGIA [None]
  - DYSPNOEA [None]
  - HEADACHE [None]
  - NASAL CONGESTION [None]
  - PAIN [None]
  - PYREXIA [None]
